FAERS Safety Report 4620531-9 (Version None)
Quarter: 2005Q1

REPORT INFORMATION
  Report Type: 
  Country: None (occurrence: None)
  Receive Date: 20050328
  Receipt Date: 20050318
  Transmission Date: 20050727
  Serious: Yes (Hospitalization, Other)
  Sender: FDA-Public Use
  Company Number: US-GLAXOSMITHKLINE-A0550456A

PATIENT
  Sex: Male

DRUGS (3)
  1. WELLBUTRIN [Suspect]
     Indication: ILL-DEFINED DISORDER
     Route: 048
     Dates: start: 20050201, end: 20050304
  2. CARDIAC ANTI-ARRHYTHMIC MEDICATION [Concomitant]
  3. ANTI-HYPERCHOLESTEROLAEMIC [Concomitant]

REACTIONS (3)
  - ECZEMA [None]
  - EXCORIATION [None]
  - PRURITUS [None]
